FAERS Safety Report 14945505 (Version 3)
Quarter: 2019Q1

REPORT INFORMATION
  Report Type: Report from Study
  Country: AU (occurrence: AU)
  Receive Date: 20180529
  Receipt Date: 20190222
  Transmission Date: 20190417
  Serious: Yes (Hospitalization)
  Sender: FDA-Public Use
  Company Number: AU-ROCHE-1991656

PATIENT
  Age: 56 Year
  Sex: Male
  Weight: 108.5 kg

DRUGS (74)
  1. METHYLPREDNISOLONE. [Concomitant]
     Active Substance: METHYLPREDNISOLONE
     Route: 065
     Dates: start: 20111128, end: 20111130
  2. GABAPENTIN. [Concomitant]
     Active Substance: GABAPENTIN
     Route: 065
     Dates: start: 20140415, end: 20140421
  3. NALOXONE [Concomitant]
     Active Substance: NALOXONE
     Route: 065
     Dates: start: 20171212
  4. OXYCODONE [Concomitant]
     Active Substance: OXYCODONE
     Route: 065
     Dates: start: 20171212
  5. LACTULOSE. [Concomitant]
     Active Substance: LACTULOSE
     Dosage: LACTULOSE 3.34 G / 5 ML
     Route: 065
     Dates: start: 20170916, end: 20170922
  6. DAIVOBET [Concomitant]
     Active Substance: BETAMETHASONE DIPROPIONATE\CALCIPOTRIENE
     Route: 061
  7. MICROLAX (AUSTRALIA) [Concomitant]
     Indication: CONSTIPATION
     Dosage: 1 ENEMA
     Route: 065
     Dates: start: 20170917, end: 20170917
  8. PANAMAX (AUSTRALIA) [Concomitant]
     Route: 065
     Dates: start: 20131219
  9. OXYNORM [Concomitant]
     Active Substance: OXYCODONE HYDROCHLORIDE
     Indication: BACK PAIN
     Route: 065
     Dates: start: 20120902
  10. OXYNORM [Concomitant]
     Active Substance: OXYCODONE HYDROCHLORIDE
     Indication: PAIN IN EXTREMITY
  11. SLOW K [Concomitant]
     Active Substance: POTASSIUM CHLORIDE
     Indication: HYPOKALAEMIA
     Route: 065
     Dates: start: 20170901, end: 20170905
  12. COLOXYL WITH SENNA [Concomitant]
     Active Substance: DOCUSATE\SENNOSIDES
     Indication: CONSTIPATION
     Dosage: 4 TABLETS
     Route: 065
     Dates: start: 20170825, end: 20170828
  13. OXYCODONE HYDROCHLORIDE. [Concomitant]
     Active Substance: OXYCODONE HYDROCHLORIDE
     Route: 065
     Dates: start: 20140212, end: 20140930
  14. PERINDOPRIL [Concomitant]
     Active Substance: PERINDOPRIL
     Route: 065
     Dates: start: 20170831, end: 20170927
  15. FLUARIX TETRA [Concomitant]
     Active Substance: INFLUENZA VIRUS VACCINE
     Indication: INFLUENZA
     Route: 065
     Dates: start: 20160429, end: 20160429
  16. AUGMENTIN DUO FORTE [Concomitant]
     Active Substance: AMOXICILLIN\CLAVULANATE POTASSIUM
     Route: 048
     Dates: start: 20160327, end: 20160402
  17. ASPRIN [Concomitant]
     Active Substance: ASPIRIN
     Route: 065
     Dates: start: 20160324, end: 20160326
  18. COLOXYL WITH SENNA [Concomitant]
     Active Substance: DOCUSATE\SENNOSIDES
     Indication: CELLULITIS
     Route: 065
     Dates: start: 20170824, end: 20170828
  19. OCRELIZUMAB. [Suspect]
     Active Substance: OCRELIZUMAB
     Indication: PRIMARY PROGRESSIVE MULTIPLE SCLEROSIS
     Dosage: TWO IV INFUSIONS OF OCRELIZUMAB 300 MG SEPARATED BY 14 DAYS FOR CYCLE 1 AND SINGLE IV INFUSION OF OC
     Route: 042
     Dates: start: 20151110
  20. PARACETAMOL [Concomitant]
     Active Substance: ACETAMINOPHEN
     Route: 065
  21. BETAMETHASONE DIPROPIONATE. [Concomitant]
     Active Substance: BETAMETHASONE DIPROPIONATE
     Indication: PSORIASIS
     Route: 065
  22. GABAPENTIN. [Concomitant]
     Active Substance: GABAPENTIN
     Indication: PAIN IN EXTREMITY
     Route: 065
     Dates: start: 20140401, end: 20140407
  23. GABAPENTIN. [Concomitant]
     Active Substance: GABAPENTIN
     Route: 065
     Dates: start: 20140506, end: 20161011
  24. NALOXONE [Concomitant]
     Active Substance: NALOXONE
     Indication: PAIN IN EXTREMITY
     Route: 065
     Dates: start: 20171206, end: 20171211
  25. COLECALCIFEROL [Concomitant]
     Active Substance: CHOLECALCIFEROL
     Dosage: 1 CAPS
     Route: 048
  26. DAPSONE. [Concomitant]
     Active Substance: DAPSONE
  27. OSTELIN (COLECALCIFEROL) [Concomitant]
     Route: 048
     Dates: start: 2011
  28. KEFLEX [Concomitant]
     Active Substance: CEPHALEXIN
     Indication: URINARY TRACT INFECTION
     Route: 065
     Dates: start: 20160715, end: 20160719
  29. ENDONE [Concomitant]
     Active Substance: OXYCODONE HYDROCHLORIDE
     Route: 065
     Dates: start: 20170824, end: 20170928
  30. PARACETAMOL [Concomitant]
     Active Substance: ACETAMINOPHEN
     Indication: HEADACHE
     Dosage: SUBSEQUENT DOSE RECEIVED ON:04/SEP/2012, 05/FEB/2013, 19/FEB/2013, 23/JUL/2013, 06/AUG/2013, 07/JAN/
     Route: 065
     Dates: start: 20120821
  31. CRANBERRY. [Concomitant]
     Active Substance: CRANBERRY
     Indication: PROPHYLAXIS
     Route: 065
     Dates: start: 201208
  32. GABAPENTIN. [Concomitant]
     Active Substance: GABAPENTIN
     Route: 065
     Dates: start: 20161012
  33. GABAPENTIN. [Concomitant]
     Active Substance: GABAPENTIN
     Route: 048
  34. PARACETAMOL [Concomitant]
     Active Substance: ACETAMINOPHEN
     Dosage: AS NEEDED FOR PAIN OR FEVER, MAXIMUM 4 G PER HOUR
     Route: 048
  35. NALOXONE [Concomitant]
     Active Substance: NALOXONE
     Route: 065
     Dates: start: 20170519, end: 20171210
  36. OXYCODONE [Concomitant]
     Active Substance: OXYCODONE
     Indication: PAIN IN EXTREMITY
     Route: 065
     Dates: start: 20170107, end: 20170518
  37. SLOW K [Concomitant]
     Active Substance: POTASSIUM CHLORIDE
     Route: 065
     Dates: start: 20170830, end: 20170901
  38. TARGIN [Concomitant]
     Active Substance: NALOXONE HYDROCHLORIDE\OXYCODONE HYDROCHLORIDE
     Route: 048
  39. DALTEPARIN SODIUM [Concomitant]
     Active Substance: DALTEPARIN SODIUM
     Indication: DEEP VEIN THROMBOSIS
     Dosage: 5000 ANTI-XA UNITS
     Route: 065
     Dates: start: 20170907, end: 20170927
  40. OXYCODONE HYDROCHLORIDE. [Concomitant]
     Active Substance: OXYCODONE HYDROCHLORIDE
     Indication: PAIN IN EXTREMITY
     Route: 065
     Dates: start: 20141001, end: 20150901
  41. ONDANSETRON [Concomitant]
     Active Substance: ONDANSETRON
     Indication: CELLULITIS
     Route: 065
     Dates: start: 20170827, end: 20170827
  42. CETIRIZINE [Concomitant]
     Active Substance: CETIRIZINE HYDROCHLORIDE
     Dosage: SUBSEQUENT DOSE RECEIVED ON:04/SEP/2012, 05/FEB/2013, 19/FEB/2013, 23/JUL/2013, 06/AUG/2013, 07/JAN/
     Route: 065
     Dates: start: 20120821
  43. PARACETAMOL [Concomitant]
     Active Substance: ACETAMINOPHEN
     Route: 065
     Dates: start: 2009, end: 20131218
  44. PANAMAX (AUSTRALIA) [Concomitant]
     Indication: PAIN IN EXTREMITY
     Route: 065
     Dates: start: 20161011
  45. CALCIPOTRIOL [Concomitant]
     Active Substance: CALCIPOTRIENE
     Indication: PSORIASIS
     Route: 065
  46. GABAPENTIN. [Concomitant]
     Active Substance: GABAPENTIN
     Route: 065
     Dates: start: 20140422, end: 20140428
  47. OXYCODONE [Concomitant]
     Active Substance: OXYCODONE
     Route: 048
  48. LACTULOSE. [Concomitant]
     Active Substance: LACTULOSE
     Indication: CONSTIPATION
     Route: 065
     Dates: start: 20150517, end: 20150517
  49. OXYCODONE HYDROCHLORIDE. [Concomitant]
     Active Substance: OXYCODONE HYDROCHLORIDE
     Route: 065
     Dates: start: 20161012, end: 20170106
  50. PERINDOPRIL [Concomitant]
     Active Substance: PERINDOPRIL
     Indication: BLOOD PRESSURE INCREASED
     Route: 065
     Dates: start: 20170829, end: 20170830
  51. CEFTRIAXONE. [Concomitant]
     Active Substance: CEFTRIAXONE
     Indication: URINARY TRACT INFECTION
     Route: 065
     Dates: start: 20160324, end: 20160326
  52. PLACEBO [Suspect]
     Active Substance: UNSPECIFIED INGREDIENT
     Indication: PRIMARY PROGRESSIVE MULTIPLE SCLEROSIS
     Dosage: TWO INTRAVENOUS (IV) INFUSIONS OF OCRELIZUMAB SEPARATED BY 14 DAYS IN EACH TREATMENT CYCLE OF 24 WEE
     Route: 042
     Dates: start: 20120821, end: 20151109
  53. NALOXONE [Concomitant]
     Active Substance: NALOXONE
     Indication: PAIN IN EXTREMITY
     Route: 065
     Dates: start: 20170107, end: 20170518
  54. NALOXONE [Concomitant]
     Active Substance: NALOXONE
     Route: 048
  55. OXYCODONE [Concomitant]
     Active Substance: OXYCODONE
     Route: 065
     Dates: start: 20171211, end: 20171211
  56. SYSTANE (HYPROMELLOSE 2910 (4000 MPA.S)) [Concomitant]
     Active Substance: HYPROMELLOSE 2910 (4000 MPA.S)
     Indication: DRY EYE
     Dosage: 3 DROP
     Route: 047
     Dates: start: 20160326
  57. COLOXYL WITH SENNA [Concomitant]
     Active Substance: DOCUSATE\SENNOSIDES
     Dosage: 4 TABLETS
     Route: 065
     Dates: start: 20170907, end: 20170918
  58. LACTULOSE. [Concomitant]
     Active Substance: LACTULOSE
     Route: 065
     Dates: start: 20170827, end: 20170827
  59. MACROGOL 3350 [Concomitant]
     Active Substance: POLYETHYLENE GLYCOL 3350
     Route: 065
     Dates: start: 201207
  60. KEFLEX [Concomitant]
     Active Substance: CEPHALEXIN
     Route: 065
     Dates: start: 20151118, end: 20151125
  61. METHYLPREDNISOLONE. [Concomitant]
     Active Substance: METHYLPREDNISOLONE
     Indication: MULTIPLE SCLEROSIS RELAPSE
     Dosage: SUBSEQUENT DOSE RECEIVED ON:04/SEP/2012, 05/FEB/2013, 19/FEB/2013, 23/JUL/2013, 06/AUG/2013, 07/JAN/
     Route: 065
     Dates: start: 20120821
  62. PARACETAMOL [Concomitant]
     Active Substance: ACETAMINOPHEN
     Route: 065
     Dates: start: 20150516, end: 20150522
  63. GABAPENTIN. [Concomitant]
     Active Substance: GABAPENTIN
     Route: 065
     Dates: start: 20120622, end: 20140331
  64. GABAPENTIN. [Concomitant]
     Active Substance: GABAPENTIN
     Route: 065
     Dates: start: 20140429, end: 20140505
  65. ASPIRIN. [Concomitant]
     Active Substance: ASPIRIN
     Dosage: WITH OR AFTER FOOD
     Route: 048
     Dates: start: 20160326, end: 20160326
  66. CEPHALEXIN. [Concomitant]
     Active Substance: CEPHALEXIN
     Dosage: 1 CAP(S)
     Route: 048
  67. MACROGOL 3350 [Concomitant]
     Active Substance: POLYETHYLENE GLYCOL 3350
     Indication: CONSTIPATION
     Dosage: 2 SACHET
     Route: 065
     Dates: start: 20170915, end: 20170921
  68. OXYCODONE HYDROCHLORIDE. [Concomitant]
     Active Substance: OXYCODONE HYDROCHLORIDE
     Indication: BACK PAIN
     Route: 065
     Dates: start: 20150902, end: 20161011
  69. OXYCODONE HYDROCHLORIDE. [Concomitant]
     Active Substance: OXYCODONE HYDROCHLORIDE
     Route: 065
     Dates: start: 20170907, end: 20170928
  70. SENNOSIDE [Concomitant]
     Active Substance: SENNOSIDES
     Indication: CONSTIPATION
     Route: 065
     Dates: start: 20170916, end: 20170923
  71. CLOTRIMAZOLE. [Concomitant]
     Active Substance: CLOTRIMAZOLE
     Indication: TINEA CRURIS
     Dosage: 2 OTHER, APPLICATIONS
     Route: 065
     Dates: start: 20171206, end: 20171211
  72. COLOXYL WITH SENNA [Concomitant]
     Active Substance: DOCUSATE\SENNOSIDES
     Route: 065
     Dates: start: 20170907, end: 20170918
  73. ENDONE [Concomitant]
     Active Substance: OXYCODONE HYDROCHLORIDE
     Indication: PAIN IN EXTREMITY
     Route: 065
     Dates: start: 20170904, end: 20170906
  74. MACROGOL [Concomitant]
     Active Substance: POLYETHYLENE GLYCOLS
     Indication: CONSTIPATION
     Dosage: 2 OTHER, SACHET
     Route: 065
     Dates: start: 20170915, end: 20170921

REACTIONS (2)
  - Cellulitis [Recovered/Resolved]
  - Cellulitis [Recovered/Resolved]

NARRATIVE: CASE EVENT DATE: 20160323
